FAERS Safety Report 5941966-8 (Version None)
Quarter: 2008Q4

REPORT INFORMATION
  Report Type: 
  Country: None (occurrence: None)
  Receive Date: 20081105
  Receipt Date: 20081028
  Transmission Date: 20090506
  Serious: Yes (Hospitalization, Other)
  Sender: FDA-Public Use
  Company Number: US-MERCK-0708USA01840

PATIENT
  Age: 71 Year
  Sex: Female
  Weight: 55 kg

DRUGS (9)
  1. FOSAMAX [Suspect]
     Indication: OSTEOPOROSIS
     Route: 048
     Dates: start: 19960101, end: 20060101
  2. ESTRENA [Concomitant]
     Indication: HORMONE LEVEL ABNORMAL
     Route: 065
     Dates: start: 19700101
  3. ENALAPRIL MALEATE [Concomitant]
     Indication: BLOOD PRESSURE
     Route: 065
     Dates: start: 19950101
  4. SIMVASTATIN [Concomitant]
     Indication: BLOOD CHOLESTEROL INCREASED
     Route: 065
     Dates: start: 19950101
  5. METAPROTERENOL SULFATE [Concomitant]
     Indication: RESPIRATORY DISORDER
     Route: 065
     Dates: start: 19950101
  6. SYNTHROID [Concomitant]
     Indication: THYROID DISORDER
     Route: 065
     Dates: start: 19700101
  7. HYDROCHLOROTHIAZIDE [Concomitant]
     Indication: HYPERTENSION
     Route: 065
     Dates: start: 19800101
  8. [THERAPY UNSPECIFIED] [Concomitant]
     Indication: POLYURIA
     Route: 065
     Dates: start: 19950101
  9. DILTIAZEM HYDROCHLORIDE [Concomitant]
     Indication: BLOOD PRESSURE
     Route: 065
     Dates: start: 19950101

REACTIONS (6)
  - AORTIC ANEURYSM [None]
  - ATRIAL FIBRILLATION [None]
  - DIABETES MELLITUS [None]
  - ILIAC ARTERY OCCLUSION [None]
  - OSTEOMYELITIS [None]
  - OSTEONECROSIS [None]
